FAERS Safety Report 5606000-8 (Version None)
Quarter: 2008Q1

REPORT INFORMATION
  Report Type: 
  Country: None (occurrence: None)
  Receive Date: 20080129
  Receipt Date: 20080116
  Transmission Date: 20080703
  Serious: Yes (Other)
  Sender: FDA-Public Use
  Company Number: US-ELI_LILLY_AND_COMPANY-US200801003314

PATIENT
  Age: 57 Year
  Sex: Male

DRUGS (5)
  1. CIALIS [Suspect]
     Dosage: 20 MG, UNK
     Dates: start: 20040101, end: 20080101
  2. WELLBUTRIN [Concomitant]
  3. FLOMAX [Concomitant]
  4. ASPIRIN [Concomitant]
  5. AMBIEN [Concomitant]
     Dosage: UNK, AS NEEDED

REACTIONS (5)
  - ANXIETY [None]
  - CHEST DISCOMFORT [None]
  - HYPERTENSION [None]
  - PRESYNCOPE [None]
  - VENTRICULAR EXTRASYSTOLES [None]
